FAERS Safety Report 9689002 (Version 1)
Quarter: 2013Q4

REPORT INFORMATION
  Report Type: Spontaneous
  Country: JP (occurrence: None)
  Receive Date: 20131112
  Receipt Date: 20131112
  Transmission Date: 20140711
  Serious: Yes (Other)
  Sender: FDA-Public Use
  Company Number: 2013JP007327

PATIENT
  Age: 40 Year
  Sex: Female

DRUGS (5)
  1. REGNITE [Suspect]
     Indication: PRODUCT USED FOR UNKNOWN INDICATION
     Route: 048
     Dates: start: 20131024, end: 20131030
  2. DIFLEX (DIFLEX) [Concomitant]
  3. TSUMURAKAMI (TSUMURAKAMI) GRANULE [Concomitant]
  4. ZOLPIDEM TARTRATE (ZOLPIDEM TARTRATE) [Concomitant]
  5. ALPRAZOLAM (ALPRAZOLAM) [Concomitant]

REACTIONS (3)
  - Abasia [None]
  - Nausea [None]
  - Vision blurred [None]
